FAERS Safety Report 8515033-3 (Version None)
Quarter: 2012Q3

REPORT INFORMATION
  Report Type: 
  Country: None (occurrence: None)
  Receive Date: 20120717
  Receipt Date: 20120709
  Transmission Date: 20120928
  Serious: Yes (Other)
  Sender: FDA-Public Use
  Company Number: SE-JNJFOC-20120704107

PATIENT
  Age: 64 Year
  Sex: Female

DRUGS (4)
  1. REMICADE [Suspect]
     Indication: ARTHROPATHY
     Route: 042
     Dates: start: 20120213
  2. REMICADE [Suspect]
     Indication: COLITIS ULCERATIVE
     Route: 042
     Dates: start: 20120213
  3. ECONAZOLE [Suspect]
     Indication: FUNGAL INFECTION
     Route: 065
     Dates: start: 20120101
  4. KAVEPENIN [Concomitant]
     Indication: TONSILLITIS STREPTOCOCCAL
     Route: 065
     Dates: start: 20120101

REACTIONS (3)
  - HEPATITIS [None]
  - TONSILLITIS STREPTOCOCCAL [None]
  - FUNGAL INFECTION [None]
